FAERS Safety Report 12620740 (Version 1)
Quarter: 2016Q3

REPORT INFORMATION
  Report Type: Spontaneous
  Country: BR (occurrence: BR)
  Receive Date: 20160804
  Receipt Date: 20160804
  Transmission Date: 20161109
  Serious: Yes (Other)
  Sender: FDA-Public Use
  Company Number: BR-AMGEN-BRASP2016085754

PATIENT
  Age: 68 Year
  Sex: Female

DRUGS (1)
  1. ENBREL [Suspect]
     Active Substance: ETANERCEPT
     Indication: PRODUCT USED FOR UNKNOWN INDICATION
     Dosage: 50 MG, 1X/WEEK
     Route: 065
     Dates: start: 20160701

REACTIONS (16)
  - Abasia [Unknown]
  - Neck pain [Unknown]
  - Pain [Not Recovered/Not Resolved]
  - Arthralgia [Unknown]
  - Peripheral swelling [Unknown]
  - Depression [Unknown]
  - Feeling abnormal [Unknown]
  - Back pain [Unknown]
  - Drug ineffective [Unknown]
  - Nausea [Unknown]
  - Myalgia [Unknown]
  - Condition aggravated [Unknown]
  - Pyrexia [Unknown]
  - Pain in extremity [Unknown]
  - Headache [Unknown]
  - Inflammation [Not Recovered/Not Resolved]

NARRATIVE: CASE EVENT DATE: 2016
